FAERS Safety Report 6569796-7 (Version None)
Quarter: 2010Q1

REPORT INFORMATION
  Report Type: 
  Country: None (occurrence: None)
  Receive Date: 20100204
  Receipt Date: 20100125
  Transmission Date: 20100710
  Serious: Yes (Disabling)
  Sender: FDA-Public Use
  Company Number: IE-ABBOTT-09P-229-0609404-00

PATIENT
  Sex: Female
  Weight: 57.1 kg

DRUGS (8)
  1. HUMIRA [Suspect]
     Indication: PSORIATIC ARTHROPATHY
     Dates: start: 20090318, end: 20090909
  2. HUMIRA [Suspect]
  3. FLU VACCINE [Concomitant]
     Indication: DRUG USE FOR UNKNOWN INDICATION
  4. PNEUMONIA VACCINE [Concomitant]
     Indication: DRUG USE FOR UNKNOWN INDICATION
  5. BONIVA [Concomitant]
     Indication: OSTEOPOROSIS
     Route: 048
     Dates: start: 20091030
  6. TRADOL [Concomitant]
     Indication: DRUG USE FOR UNKNOWN INDICATION
     Route: 048
     Dates: start: 20091106
  7. METHOTREXATE [Concomitant]
     Indication: DRUG USE FOR UNKNOWN INDICATION
     Dates: start: 20090111
  8. ENBREL [Concomitant]
     Indication: DRUG USE FOR UNKNOWN INDICATION
     Dates: start: 20090111

REACTIONS (5)
  - MUSCULOSKELETAL PAIN [None]
  - OROPHARYNGEAL PAIN [None]
  - PAIN IN EXTREMITY [None]
  - PSORIASIS [None]
  - WEIGHT DECREASED [None]
